FAERS Safety Report 10433268 (Version 1)
Quarter: 2014Q3

REPORT INFORMATION
  Report Type: Spontaneous
  Country: NL (occurrence: NL)
  Receive Date: 20140905
  Receipt Date: 20140905
  Transmission Date: 20150326
  Serious: Yes (Life-Threatening)
  Sender: FDA-Public Use
  Company Number: NL-JNJFOC-20140901369

PATIENT
  Sex: Male

DRUGS (1)
  1. LEUSTATIN [Suspect]
     Active Substance: CLADRIBINE
     Indication: HAIRY CELL LEUKAEMIA
     Route: 065
     Dates: start: 20140721, end: 20140725

REACTIONS (5)
  - Loss of consciousness [Unknown]
  - Muscle spasms [Unknown]
  - Epilepsy [Unknown]
  - Neurotoxicity [Unknown]
  - Muscular weakness [Unknown]

NARRATIVE: CASE EVENT DATE: 20140827
